FAERS Safety Report 5287760-5 (Version None)
Quarter: 2007Q2

REPORT INFORMATION
  Report Type: 
  Country: None (occurrence: None)
  Receive Date: 20070402
  Receipt Date: 20070402
  Transmission Date: 20071010
  Serious: Yes (Other)
  Sender: FDA-Public Use
  Company Number: None

PATIENT
  Sex: Male
  Weight: 65.7716 kg

DRUGS (1)
  1. DURAGESIC-25 [Suspect]
     Indication: NEUROPATHY
     Dosage: 25 MCG

REACTIONS (2)
  - INSOMNIA [None]
  - NAUSEA [None]
